FAERS Safety Report 4733479-6 (Version None)
Quarter: 2005Q3

REPORT INFORMATION
  Report Type: 
  Country: None (occurrence: None)
  Receive Date: 20050801
  Receipt Date: 20050720
  Transmission Date: 20060218
  Serious: Yes (Death)
  Sender: FDA-Public Use
  Company Number: GBWYE778427JUN05

PATIENT
  Age: 65 Year
  Sex: Female

DRUGS (6)
  1. EFFEXOR [Suspect]
     Indication: DEPRESSION
     Dosage: 75 MG 2X PER 1 DAY
     Dates: start: 20010101
  2. ANANDIN PARACETAMOL            (ACETAMINOPHEN, TABLET, 0) [Suspect]
  3. ASPIRIN [Concomitant]
  4. ATENOLOL [Concomitant]
  5. LANSOPRAZOLE [Concomitant]
  6. FUROSEMIDE [Concomitant]

REACTIONS (9)
  - ABNORMAL BEHAVIOUR [None]
  - COMPLETED SUICIDE [None]
  - CORONARY ARTERY DISEASE [None]
  - HEPATIC FAILURE [None]
  - HEPATIC NECROSIS [None]
  - INTENTIONAL MISUSE [None]
  - MALAISE [None]
  - OVERDOSE [None]
  - SUICIDAL IDEATION [None]
